FAERS Safety Report 9061547 (Version 1)
Quarter: 2013Q1

REPORT INFORMATION
  Report Type: Spontaneous
  Country: US (occurrence: None)
  Receive Date: 20130122
  Receipt Date: 20130122
  Transmission Date: 20140127
  Serious: Yes (Death, Other)
  Sender: FDA-Public Use
  Company Number: AUR-APL-2013-00565

PATIENT
  Age: 66 Year
  Sex: Female

DRUGS (11)
  1. SIMVASTATIN [Suspect]
     Indication: PRODUCT USED FOR UNKNOWN INDICATION
  2. VALACYCLOVIR [Suspect]
  3. LITHIUM [Suspect]
     Route: 048
  4. ESCITALOPRAM [Suspect]
  5. METHYLPHENIDATE [Suspect]
  6. ARIPIPRAZOLE (ARIPIPRAZOLE) [Suspect]
  7. PROPOXYPHENE [Suspect]
  8. HYDROCODONE [Suspect]
  9. OXYCODONE (OXYCODONE) [Suspect]
  10. TRIAZOLAM [Suspect]
  11. ACETAMINOPHEN (PARACETAMOL) [Suspect]

REACTIONS (4)
  - Completed suicide [None]
  - Toxicity to various agents [None]
  - Respiratory arrest [None]
  - Cardiac arrest [None]
